FAERS Safety Report 9419694 (Version 1)
Quarter: 2013Q3

REPORT INFORMATION
  Report Type: Spontaneous
  Country: US (occurrence: US)
  Receive Date: 20130725
  Receipt Date: 20130725
  Transmission Date: 20140515
  Serious: No
  Sender: FDA-Public Use
  Company Number: US-BAYER-2013-089852

PATIENT
  Sex: Male

DRUGS (2)
  1. GADAVIST [Suspect]
     Indication: NUCLEAR MAGNETIC RESONANCE IMAGING LIVER
     Dosage: 10 ML, ONCE
     Dates: start: 2013, end: 2013
  2. GADAVIST [Suspect]
     Indication: HAEMANGIOMA OF LIVER

REACTIONS (2)
  - Dyspnoea [Recovered/Resolved]
  - Urticaria [None]
